FAERS Safety Report 9293861 (Version 2)
Quarter: 2013Q3

REPORT INFORMATION
  Report Type: Report from Study
  Country: US (occurrence: US)
  Receive Date: 20130516
  Receipt Date: 20130718
  Transmission Date: 20140515
  Serious: Yes (Death, Other)
  Sender: FDA-Public Use
  Company Number: US-ROCHE-778162

PATIENT
  Age: 61 Year
  Sex: Male
  Weight: 53.6 kg

DRUGS (3)
  1. VISMODEGIB [Suspect]
     Indication: SMALL CELL LUNG CANCER
     Route: 048
     Dates: start: 20110315, end: 20110328
  2. CISPLATIN [Suspect]
     Indication: SMALL CELL LUNG CANCER
     Route: 042
     Dates: start: 20110315, end: 20110315
  3. ETOPOSIDE [Suspect]
     Indication: SMALL CELL LUNG CANCER
     Route: 042
     Dates: start: 20110315

REACTIONS (6)
  - Acute respiratory distress syndrome [Fatal]
  - Hyponatraemia [Unknown]
  - Hypoalbuminaemia [Unknown]
  - Hypocalcaemia [Unknown]
  - Neutrophil count decreased [Unknown]
  - White blood cell count decreased [Unknown]
